FAERS Safety Report 10896786 (Version 1)
Quarter: 2015Q1

REPORT INFORMATION
  Report Type: Spontaneous
  Country: US (occurrence: None)
  Receive Date: 20150302
  Receipt Date: 20150302
  Transmission Date: 20150721
  Serious: No
  Sender: FDA-Public Use
  Company Number: None

PATIENT
  Age: 51 Year
  Sex: Male
  Weight: 106.6 kg

DRUGS (18)
  1. COQ10 [Concomitant]
     Active Substance: UBIDECARENONE
  2. VITAMIN B12 [Concomitant]
     Active Substance: CYANOCOBALAMIN
  3. CPAP [Concomitant]
     Active Substance: DEVICE
  4. CRESTOR [Concomitant]
     Active Substance: ROSUVASTATIN CALCIUM
  5. TESTOSTERONE. [Concomitant]
     Active Substance: TESTOSTERONE
  6. ASPERINE [Concomitant]
  7. METFORMIN [Concomitant]
     Active Substance: METFORMIN HYDROCHLORIDE
  8. GUAIFINISEN [Concomitant]
  9. ACIDOPHILOUS [Concomitant]
     Active Substance: LACTOBACILLUS ACIDOPHILUS
  10. CARVEDILOL. [Concomitant]
     Active Substance: CARVEDILOL
  11. FIBER [Concomitant]
     Active Substance: PSYLLIUM HUSK
  12. BELSOMRA [Suspect]
     Active Substance: SUVOREXANT
     Indication: INSOMNIA
     Route: 048
     Dates: start: 20150228
  13. LORITAB [Concomitant]
  14. L-GLUTAMINE [Concomitant]
  15. FINITIDINE [Concomitant]
  16. ADERALL [Concomitant]
  17. VITAMIN D3 [Concomitant]
     Active Substance: CHOLECALCIFEROL
  18. FEXOFINIDINE [Concomitant]

REACTIONS (4)
  - Visual perseveration [None]
  - Nightmare [None]
  - Feeling abnormal [None]
  - Thinking abnormal [None]

NARRATIVE: CASE EVENT DATE: 20150301
